FAERS Safety Report 15203427 (Version 4)
Quarter: 2018Q3

REPORT INFORMATION
  Report Type: Spontaneous
  Country: US (occurrence: US)
  Receive Date: 20180726
  Receipt Date: 20180927
  Transmission Date: 20181010
  Serious: Yes (Other)
  Sender: FDA-Public Use
  Company Number: US-PFIZER INC-2018297463

PATIENT
  Age: 21 Year
  Sex: Female

DRUGS (3)
  1. CORTEF [Suspect]
     Active Substance: HYDROCORTISONE
     Dosage: 2.5 MG, UNK
  2. CORTEF [Suspect]
     Active Substance: HYDROCORTISONE
     Dosage: UNK, 2X/DAY
  3. CORTEF [Suspect]
     Active Substance: HYDROCORTISONE
     Dosage: 10 MG, UNK

REACTIONS (14)
  - Withdrawal syndrome [Unknown]
  - Gastric disorder [Unknown]
  - Blood glucose abnormal [Unknown]
  - Syncope [Unknown]
  - Insomnia [Unknown]
  - Condition aggravated [Not Recovered/Not Resolved]
  - Circumstance or information capable of leading to medication error [Unknown]
  - Anxiety disorder [Not Recovered/Not Resolved]
  - Bipolar disorder [Unknown]
  - Drug ineffective for unapproved indication [Unknown]
  - Delusion [Unknown]
  - Feeling abnormal [Unknown]
  - Pain [Unknown]
  - Asthenia [Not Recovered/Not Resolved]
